FAERS Safety Report 5260926-6 (Version None)
Quarter: 2007Q1

REPORT INFORMATION
  Report Type: 
  Country: None (occurrence: None)
  Receive Date: 20070306
  Receipt Date: 20070219
  Transmission Date: 20070707
  Serious: Yes (Hospitalization)
  Sender: FDA-Public Use
  Company Number: 237501

PATIENT
  Age: 76 Year
  Sex: Female

DRUGS (1)
  1. AVASTIN [Suspect]
     Indication: MACULAR DEGENERATION
     Dosage: 1.25 MG, INTRAVITREAL
     Dates: start: 20060616

REACTIONS (6)
  - ANEURYSM [None]
  - ENCEPHALITIS [None]
  - INTRACRANIAL ANEURYSM [None]
  - RESPIRATION ABNORMAL [None]
  - SOMNOLENCE [None]
  - VASCULITIS CEREBRAL [None]
